FAERS Safety Report 9058478 (Version 1)
Quarter: 2013Q1

REPORT INFORMATION
  Report Type: Spontaneous
  Country: US (occurrence: None)
  Receive Date: 20130205
  Receipt Date: 20130205
  Transmission Date: 20140127
  Serious: No
  Sender: FDA-Public Use
  Company Number: None

PATIENT
  Age: 7 Year
  Sex: Female
  Weight: 28.58 kg

DRUGS (1)
  1. OSELTAMIVIR PHOSPHATE [Suspect]
     Indication: INFLUENZA VIRUS TEST POSITIVE
     Route: 048
     Dates: start: 20130130, end: 20130203

REACTIONS (2)
  - Aggression [None]
  - Abnormal behaviour [None]
